FAERS Safety Report 4451677-6 (Version None)
Quarter: 2004Q3

REPORT INFORMATION
  Report Type: 
  Country: None (occurrence: None)
  Receive Date: 20040915
  Receipt Date: 20040906
  Transmission Date: 20050211
  Serious: Yes (Other)
  Sender: FDA-Public Use
  Company Number: 2004230107IN

PATIENT
  Sex: Female

DRUGS (1)
  1. DEPO-PROVERA [Suspect]
     Indication: CONTRACEPTION
     Dosage: INJECTION RECEIVED, INTRAMUSCULAR
     Route: 030
     Dates: start: 20040813, end: 20040813

REACTIONS (4)
  - ANAPHYLACTIC SHOCK [None]
  - BRADYCARDIA [None]
  - HYPERHIDROSIS [None]
  - LARYNGEAL OEDEMA [None]
